FAERS Safety Report 5749186-7 (Version None)
Quarter: 2008Q2

REPORT INFORMATION
  Report Type: 
  Country: None (occurrence: None)
  Receive Date: 20080527
  Receipt Date: 20080515
  Transmission Date: 20081010
  Serious: Yes (Other)
  Sender: FDA-Public Use
  Company Number: JP-ROCHE-560084

PATIENT
  Sex: Male
  Weight: 18 kg

DRUGS (5)
  1. TAMIFLU [Suspect]
     Indication: INFLUENZA
     Dosage: DRUG REPORTED AS TAMIFLU DRY SYRUP 3%.
     Route: 048
     Dates: start: 20080210, end: 20080210
  2. TAMIFLU [Suspect]
     Route: 048
     Dates: start: 20080211, end: 20080212
  3. PERIACTIN [Concomitant]
     Route: 048
     Dates: start: 20080212, end: 20080213
  4. ZADITEN [Concomitant]
     Route: 048
     Dates: start: 20080212, end: 20080213
  5. UNIPRON [Concomitant]
     Dosage: FORM REPORTED AS RECTAL SUPPOSITORY.
     Route: 054
     Dates: start: 20080212, end: 20080213

REACTIONS (1)
  - ABNORMAL BEHAVIOUR [None]
